FAERS Safety Report 7750354-3 (Version None)
Quarter: 2011Q3

REPORT INFORMATION
  Report Type: 
  Country: None (occurrence: None)
  Receive Date: 20110912
  Receipt Date: 20110902
  Transmission Date: 20111222
  Serious: Yes (Hospitalization)
  Sender: FDA-Public Use
  Company Number: 966314

PATIENT
  Age: 28 Year
  Sex: Female
  Weight: 56 kg

DRUGS (4)
  1. CEFTAZIDIME [Concomitant]
  2. MEROPENEM [Suspect]
     Indication: CYSTIC FIBROSIS
     Dosage: 2 G GRAM(S), 1 DAY, INTRAVENOUS DRIP
     Route: 041
     Dates: start: 20110606
  3. MEROPENEM [Suspect]
     Indication: CONDITION AGGRAVATED
     Dosage: 2 G GRAM(S), 1 DAY, INTRAVENOUS DRIP
     Route: 041
     Dates: start: 20110606
  4. TOBRAMYCIN [Concomitant]

REACTIONS (7)
  - MALAISE [None]
  - CYANOSIS [None]
  - CHEST DISCOMFORT [None]
  - PRESYNCOPE [None]
  - DRUG HYPERSENSITIVITY [None]
  - CHEST PAIN [None]
  - OXYGEN SATURATION DECREASED [None]
